FAERS Safety Report 12617250 (Version 1)
Quarter: 2016Q3

REPORT INFORMATION
  Report Type: Report from Study
  Country: US (occurrence: US)
  Receive Date: 20160803
  Receipt Date: 20160803
  Transmission Date: 20161109
  Serious: Yes (Hospitalization, Other)
  Sender: FDA-Public Use
  Company Number: US-AMGEN-USASL2016095446

PATIENT
  Age: 58 Year
  Sex: Female
  Weight: 48.53 kg

DRUGS (17)
  1. PAROXETINE. [Concomitant]
     Active Substance: PAROXETINE
     Dosage: 40 MG, QD
     Route: 048
  2. COUMADIN [Concomitant]
     Active Substance: WARFARIN SODIUM
     Dosage: UNK
  3. PAXIL [Concomitant]
     Active Substance: PAROXETINE HYDROCHLORIDE
     Dosage: 30 MG, QD
  4. PROTONIX [Concomitant]
     Active Substance: PANTOPRAZOLE SODIUM
     Dosage: 40 MG, QD
  5. ATIVAN [Concomitant]
     Active Substance: LORAZEPAM
     Dosage: 1 MG, UNK
  6. KYPROLIS [Suspect]
     Active Substance: CARFILZOMIB
     Indication: PLASMA CELL MYELOMA
     Dosage: 20 MG/M2
     Route: 065
     Dates: start: 20120810
  7. MYFORTIC [Concomitant]
     Active Substance: MYCOPHENOLATE SODIUM
     Dosage: 180 MG, UNK
  8. MIRALAX [Concomitant]
     Active Substance: POLYETHYLENE GLYCOL 3350
     Dosage: 17 G, UNK
     Route: 048
  9. AMBIEN [Concomitant]
     Active Substance: ZOLPIDEM TARTRATE
     Dosage: 10 MG, QD
  10. PANTOPRAZOLE [Concomitant]
     Active Substance: PANTOPRAZOLE SODIUM
     Dosage: 40 MG, UNK
  11. KYPROLIS [Suspect]
     Active Substance: CARFILZOMIB
     Indication: AMYLOIDOSIS
     Dosage: 27 MG/M2, D 1,2,8,9 AND 15,16,AND 28 DAYS
     Route: 042
     Dates: start: 20160504
  12. PREDNISONE. [Concomitant]
     Active Substance: PREDNISONE
     Dosage: 5 MG, UNK
  13. LASIX [Concomitant]
     Active Substance: FUROSEMIDE
     Dosage: 20 MG, QD
     Route: 048
  14. PROGRAF [Concomitant]
     Active Substance: TACROLIMUS\TACROLIMUS ANHYDROUS
     Dosage: UNK
  15. LIPITOR [Concomitant]
     Active Substance: ATORVASTATIN CALCIUM
     Dosage: 80 MG, QD
     Route: 048
  16. ASPIRIN. [Concomitant]
     Active Substance: ASPIRIN
     Dosage: 81 MG, UNK
  17. BACTRIM [Concomitant]
     Active Substance: SULFAMETHOXAZOLE\TRIMETHOPRIM
     Dosage: MONDAY- WEDNESDAY- FRIDAY 400-80

REACTIONS (23)
  - Asthenia [Unknown]
  - Weight decreased [Recovered/Resolved]
  - Ocular hyperaemia [Unknown]
  - Anxiety [Unknown]
  - Hysterectomy [Unknown]
  - Fatigue [Unknown]
  - Diarrhoea [Unknown]
  - Cell death [Recovering/Resolving]
  - Constipation [Unknown]
  - Impaired gastric emptying [Unknown]
  - Amyloidosis [Unknown]
  - Mouth haemorrhage [Recovering/Resolving]
  - Skin disorder [Recovering/Resolving]
  - Blood count abnormal [Unknown]
  - Laceration [Recovering/Resolving]
  - Gastrooesophageal reflux disease [Unknown]
  - Infection [Unknown]
  - Carpal tunnel syndrome [Unknown]
  - Renal transplant [Unknown]
  - Blister [Recovering/Resolving]
  - Hypotension [Recovered/Resolved]
  - Asthma [Unknown]
  - Oedema [Recovering/Resolving]

NARRATIVE: CASE EVENT DATE: 201304
